FAERS Safety Report 5009576-7 (Version None)
Quarter: 2006Q2

REPORT INFORMATION
  Report Type: 
  Country: None (occurrence: None)
  Receive Date: 20060522
  Receipt Date: 20060509
  Transmission Date: 20061013
  Serious: Yes (Life-Threatening, Hospitalization)
  Sender: FDA-Public Use
  Company Number: 2006061793

PATIENT
  Age: 75 Year
  Sex: Male
  Weight: 65 kg

DRUGS (4)
  1. SUTENT [Suspect]
     Indication: RENAL CELL CARCINOMA STAGE UNSPECIFIED
     Dosage: 50 MG (50 MG, DAILY INTERVAL: EVERY DAY), ORAL
     Route: 048
     Dates: start: 20060301
  2. DARBEPOETIN ALFA (FARBEPOETIN ALFA) [Concomitant]
  3. ENALAPRIL MALEATE [Concomitant]
  4. DIAMICRON (GLICLAZIDE) [Concomitant]

REACTIONS (7)
  - BLOOD LACTATE DEHYDROGENASE INCREASED [None]
  - HYPERTENSIVE CRISIS [None]
  - NERVOUS SYSTEM DISORDER [None]
  - NEUTROPENIC INFECTION [None]
  - PANCYTOPENIA [None]
  - PNEUMONIA [None]
  - SPEECH DISORDER [None]
